FAERS Safety Report 7491174-7 (Version None)
Quarter: 2011Q2

REPORT INFORMATION
  Report Type: 
  Country: None (occurrence: None)
  Receive Date: 20110519
  Receipt Date: 20110517
  Transmission Date: 20111010
  Serious: Yes (Other)
  Sender: FDA-Public Use
  Company Number: IT-ROCHE-777588

PATIENT
  Sex: Female

DRUGS (3)
  1. XELODA [Suspect]
     Dosage: FREQ: CYCLIC, DOSE REDUCED
     Route: 048
     Dates: start: 20110128
  2. CARBOPLATIN [Suspect]
     Dosage: FREQ: CYCLIC
     Route: 042
     Dates: start: 20110128, end: 20110214
  3. XELODA [Suspect]
     Dosage: FROM DAY 5 UP TO DAY 14
     Route: 048
     Dates: end: 20110314

REACTIONS (5)
  - HYPOSIDERAEMIA [None]
  - NAUSEA [None]
  - ASTHENIA [None]
  - CONSTIPATION [None]
  - NEUTROPENIA [None]
